FAERS Safety Report 19443203 (Version 1)
Quarter: 2021Q2

REPORT INFORMATION
  Report Type: Other
  Country: US (occurrence: US)
  Receive Date: 20210621
  Receipt Date: 20210621
  Transmission Date: 20210717
  Serious: Yes (Other)
  Sender: FDA-Public Use
  Company Number: US-ROCHE-2849456

PATIENT
  Age: 72 Year
  Sex: Female

DRUGS (10)
  1. DOXORUBICIN [Suspect]
     Active Substance: DOXORUBICIN
     Indication: TRIPLE HIT LYMPHOMA
     Route: 042
  2. LIPITOR [Concomitant]
     Active Substance: ATORVASTATIN CALCIUM
  3. CYCLOPHOSPHAMIDE. [Suspect]
     Active Substance: CYCLOPHOSPHAMIDE
     Indication: TRIPLE HIT LYMPHOMA
     Route: 042
  4. ALBUTEROL. [Concomitant]
     Active Substance: ALBUTEROL
  5. VENETOCLAX. [Concomitant]
     Active Substance: VENETOCLAX
  6. PREDNISONE. [Suspect]
     Active Substance: PREDNISONE
     Indication: TRIPLE HIT LYMPHOMA
     Route: 042
  7. VINCRISTINE [Suspect]
     Active Substance: VINCRISTINE
     Indication: TRIPLE HIT LYMPHOMA
     Route: 042
  8. RITUXIMAB. [Suspect]
     Active Substance: RITUXIMAB
     Indication: TRIPLE HIT LYMPHOMA
     Route: 042
  9. ETOPOSIDE. [Suspect]
     Active Substance: ETOPOSIDE
     Indication: TRIPLE HIT LYMPHOMA
     Route: 042
  10. METHOTREXATE. [Suspect]
     Active Substance: METHOTREXATE
     Indication: TRIPLE HIT LYMPHOMA
     Route: 037

REACTIONS (9)
  - Neuropathy peripheral [Recovering/Resolving]
  - Nausea [Unknown]
  - Gastrooesophageal reflux disease [Recovering/Resolving]
  - Vocal cord paralysis [Recovering/Resolving]
  - Neutrophil count decreased [Unknown]
  - Decreased appetite [Recovering/Resolving]
  - Dysphonia [Recovering/Resolving]
  - Peripheral motor neuropathy [Recovering/Resolving]
  - Alopecia [Unknown]
